FAERS Safety Report 25544591 (Version 1)
Quarter: 2025Q3

REPORT INFORMATION
  Report Type: Spontaneous
  Country: EU (occurrence: EU)
  Receive Date: 20250711
  Receipt Date: 20250711
  Transmission Date: 20251021
  Serious: Yes (Hospitalization)
  Sender: MYLAN
  Company Number: EU-ROCHE-10000318618

PATIENT
  Age: 53 Year
  Sex: Female

DRUGS (6)
  1. MYCOPHENOLATE MOFETIL [Suspect]
     Active Substance: MYCOPHENOLATE MOFETIL
     Indication: Systemic scleroderma
     Dosage: 2500 MILLIGRAM, QD
  2. RITUXIMAB [Suspect]
     Active Substance: RITUXIMAB
     Indication: Systemic scleroderma
     Dosage: 1000 MILLIGRAM, Q3MONTHS (EVERY 3 MONTHS)
  3. CYCLOPHOSPHAMIDE [Concomitant]
     Active Substance: CYCLOPHOSPHAMIDE
     Indication: Systemic scleroderma
     Dosage: 1 GRAM, MONTHLY (8/6.4)
  4. BOSENTAN [Concomitant]
     Active Substance: BOSENTAN
  5. NINTEDANIB [Concomitant]
     Active Substance: NINTEDANIB
  6. ILOPROST [Concomitant]
     Active Substance: ILOPROST

REACTIONS (2)
  - Pneumonia [Unknown]
  - COVID-19 [Unknown]
